FAERS Safety Report 25792346 (Version 1)
Quarter: 2025Q3

REPORT INFORMATION
  Report Type: Spontaneous
  Country: TT (occurrence: TT)
  Receive Date: 20250911
  Receipt Date: 20250911
  Transmission Date: 20251021
  Serious: Yes (Other)
  Sender: SANDOZ
  Company Number: TT-SANDOZ-SDZ2025TT065730

PATIENT
  Age: 83 Year
  Sex: Male

DRUGS (3)
  1. AZITHROMYCIN [Suspect]
     Active Substance: AZITHROMYCIN
     Indication: Respiratory tract infection viral
     Route: 065
     Dates: start: 20250827, end: 20250904
  2. CETIRIZINE [Suspect]
     Active Substance: CETIRIZINE HYDROCHLORIDE
     Indication: Respiratory tract infection viral
     Route: 065
     Dates: start: 20250827, end: 20250904
  3. IVABRADINE [Suspect]
     Active Substance: IVABRADINE
     Indication: Respiratory tract infection viral
     Route: 065
     Dates: start: 20250827, end: 20250904

REACTIONS (2)
  - Heart rate decreased [Unknown]
  - Dizziness [Unknown]

NARRATIVE: CASE EVENT DATE: 20250904
